FAERS Safety Report 6970130-9 (Version None)
Quarter: 2010Q3

REPORT INFORMATION
  Report Type: 
  Country: None (occurrence: None)
  Receive Date: 20100823
  Receipt Date: 20100422
  Transmission Date: 20110219
  Serious: No
  Sender: FDA-Public Use
  Company Number: 010563

PATIENT
  Sex: Female
  Weight: 81.6 kg

DRUGS (9)
  1. CIMZIA [Suspect]
     Indication: RHEUMATOID ARTHRITIS
     Dosage: (400 MG 1X/2 WEEKS SUBCUTANEOUS)
     Route: 058
     Dates: start: 20100413
  2. XANAX [Concomitant]
  3. TRIAMTERENE AND HYDROCHLOROTHIAZIDE [Concomitant]
  4. CRESTOR [Concomitant]
  5. NADOLOL [Concomitant]
  6. PHENAZOPYRIDINE HCL TAB [Concomitant]
  7. CELEBREX [Concomitant]
  8. AMBIEN [Concomitant]
  9. DARVOCET [Concomitant]

REACTIONS (1)
  - URINARY TRACT INFECTION [None]
